FAERS Safety Report 24750461 (Version 1)
Quarter: 2024Q4

REPORT INFORMATION
  Report Type: Spontaneous
  Country: FR (occurrence: FR)
  Receive Date: 20241218
  Receipt Date: 20241218
  Transmission Date: 20250114
  Serious: Yes (Other)
  Sender: MERCK
  Company Number: None

PATIENT
  Age: 58 Year
  Sex: Male
  Weight: 116 kg

DRUGS (4)
  1. IVERMECTIN [Suspect]
     Active Substance: IVERMECTIN
     Indication: Infection parasitic
     Dosage: UNKNOWN DOSE
     Route: 048
     Dates: start: 20241113, end: 20241113
  2. BACTRIM [Suspect]
     Active Substance: SULFAMETHOXAZOLE\TRIMETHOPRIM
     Indication: Pneumocystis jirovecii pneumonia
     Dosage: 1 DF
     Route: 048
     Dates: start: 20241025, end: 20241117
  3. VALGANCICLOVIR HYDROCHLORIDE [Suspect]
     Active Substance: VALGANCICLOVIR HYDROCHLORIDE
     Indication: Prophylaxis against transplant rejection
     Dosage: 500 MG/D
     Route: 048
     Dates: start: 20241101, end: 20241116
  4. CELLCEPT [Concomitant]
     Active Substance: MYCOPHENOLATE MOFETIL
     Indication: Prophylaxis against transplant rejection
     Dosage: 500 MG/D
     Route: 048
     Dates: start: 20241101, end: 20241116

REACTIONS (2)
  - Thrombocytopenia [Not Recovered/Not Resolved]
  - Haemoglobin decreased [Not Recovered/Not Resolved]

NARRATIVE: CASE EVENT DATE: 20241116
